FAERS Safety Report 4696159-1 (Version None)
Quarter: 2005Q2

REPORT INFORMATION
  Report Type: 
  Country: None (occurrence: None)
  Receive Date: 20050620
  Receipt Date: 20050602
  Transmission Date: 20051028
  Serious: Yes (Hospitalization)
  Sender: FDA-Public Use
  Company Number: 2005EU001173

PATIENT
  Age: 57 Year
  Sex: Male

DRUGS (7)
  1. FK506(TACROLIMUS) CAPSULE [Suspect]
     Indication: LIVER TRANSPLANT
     Dosage: 0.00MG
     Dates: start: 20050327
  2. MYCOPHENOLATE MOFETIL (MYCOPHENOLATE MOFETIL) [Suspect]
     Dosage: SEE IMAGE
     Route: 048
     Dates: start: 20050311, end: 20050317
  3. METHYPREDNISOLONE (METHYLPREDNISOLONE) [Suspect]
     Indication: LIVER TRANSPLANT
     Dosage: 120.00 MG, UID/QD
     Dates: start: 20050311, end: 20050313
  4. PREDNISONE (PREDNSONE) [Suspect]
     Indication: LIVER TRANSPLANT
     Dosage: 20.00 MG, UID/QD
     Dates: start: 20050314
  5. GANCICLOVIR (GLACICLOVIR) [Concomitant]
  6. IMMUNE GLOBULIN INTRAVENOUS (HUMAN) [Concomitant]
  7. DIGOXIN [Concomitant]

REACTIONS (1)
  - LIPOMATOSIS [None]
